FAERS Safety Report 8619029-2 (Version None)
Quarter: 2012Q3

REPORT INFORMATION
  Report Type: 
  Country: None (occurrence: None)
  Receive Date: 20120824
  Receipt Date: 20120816
  Transmission Date: 20120928
  Serious: Yes (Hospitalization, Other)
  Sender: FDA-Public Use
  Company Number: US-BAYER-2012-085864

PATIENT
  Age: 37 Year
  Sex: Female
  Weight: 70.295 kg

DRUGS (9)
  1. BACTRIM [Concomitant]
  2. ACETAMINOPHEN AND HYDROCODONE BITARTRATE [Concomitant]
     Dosage: 325 MG,1 TO 2 TABS PRN
     Route: 048
  3. CIPROFLOXACIN [Concomitant]
  4. MULTIVITAMIN [Concomitant]
     Indication: HYPOVITAMINOSIS
     Dosage: 2 DAILY
  5. OXYCODONE HCL [Concomitant]
     Indication: PAIN
     Dosage: 1 OR 2 TABLETS EVERY 6 HOURS AS NEEDED
     Route: 048
     Dates: start: 20100112
  6. YAZ [Suspect]
     Indication: CONTRACEPTION
     Dosage: UNK
     Dates: start: 20060501, end: 20100111
  7. CYCLOBENZAPRINE [Concomitant]
     Dosage: 10 MG, QID
     Route: 048
     Dates: start: 20100120
  8. YAZ [Suspect]
     Indication: ACNE
  9. VICODIN [Concomitant]

REACTIONS (2)
  - CHOLELITHIASIS [None]
  - PULMONARY EMBOLISM [None]
